FAERS Safety Report 15633105 (Version 2)
Quarter: 2018Q4

REPORT INFORMATION
  Report Type: Spontaneous
  Country: JP (occurrence: JP)
  Receive Date: 20181119
  Receipt Date: 20181122
  Transmission Date: 20190205
  Serious: Yes (Death, Hospitalization, Other)
  Sender: FDA-Public Use
  Company Number: JP-BRISTOL-MYERS SQUIBB COMPANY-BMS-2018-045389

PATIENT
  Age: 71 Year
  Sex: Male
  Weight: 77.5 kg

DRUGS (7)
  1. OPDIVO [Suspect]
     Active Substance: NIVOLUMAB
     Indication: HEAD AND NECK CANCER METASTATIC
     Dosage: 3 MG/KG, UNK
     Route: 041
     Dates: start: 20180131
  2. TALION                             /01587402/ [Concomitant]
     Active Substance: BEPOTASTINE BESILATE
     Indication: URTICARIA
     Dosage: 10 MG, Q12H
     Route: 048
     Dates: start: 20180425
  3. DIART [Concomitant]
     Active Substance: AZOSEMIDE
     Indication: CARDIAC FAILURE CHRONIC
     Dosage: 60 MG, UNK
     Route: 048
  4. LENDORMIN [Concomitant]
     Active Substance: BROTIZOLAM
     Indication: PRODUCT USED FOR UNKNOWN INDICATION
     Dosage: 0.25 MG, QD
     Route: 048
  5. XARELTO [Concomitant]
     Active Substance: RIVAROXABAN
     Indication: ATRIAL FIBRILLATION
     Dosage: 10 MG, QD
     Route: 048
  6. TRAMAL [Concomitant]
     Active Substance: TRAMADOL
     Indication: CANCER PAIN
     Dosage: 50 MG, Q6H
     Route: 048
     Dates: start: 20180131
  7. MAGNESIUM OXIDE. [Concomitant]
     Active Substance: MAGNESIUM OXIDE
     Indication: CONSTIPATION
     Dosage: 500 MG, Q8H
     Route: 048
     Dates: start: 201711

REACTIONS (5)
  - General physical health deterioration [Fatal]
  - Malignant neoplasm progression [Fatal]
  - Hypopituitarism [Unknown]
  - Interstitial lung disease [Fatal]
  - Hypothyroidism [Fatal]

NARRATIVE: CASE EVENT DATE: 20180207
